FAERS Safety Report 10750917 (Version 1)
Quarter: 2015Q1

REPORT INFORMATION
  Report Type: Spontaneous
  Country: IE (occurrence: IE)
  Receive Date: 20150130
  Receipt Date: 20150130
  Transmission Date: 20150721
  Serious: Yes (Hospitalization)
  Sender: FDA-Public Use
  Company Number: IE-JNJFOC-20150110758

PATIENT
  Age: 4 Decade
  Sex: Male

DRUGS (2)
  1. XEPLION [Suspect]
     Active Substance: PALIPERIDONE PALMITATE
     Indication: PRODUCT USED FOR UNKNOWN INDICATION
     Route: 030
  2. XEPLION [Suspect]
     Active Substance: PALIPERIDONE PALMITATE
     Indication: PRODUCT USED FOR UNKNOWN INDICATION
     Route: 030
     Dates: start: 201407

REACTIONS (3)
  - Abnormal behaviour [Unknown]
  - Paraesthesia [Unknown]
  - Aggression [Unknown]

NARRATIVE: CASE EVENT DATE: 201407
